FAERS Safety Report 8727212 (Version 2)
Quarter: 2012Q4

REPORT INFORMATION
  Report Type: 
  Country: US (occurrence: US)
  Receive Date: 20120816
  Receipt Date: 20121010
  Transmission Date: 20130627
  Serious: Yes (Hospitalization)
  Sender: FDA-Public Use
  Company Number: US-UCBSA-063432

PATIENT
  Age: 60 Year
  Sex: Female
  Weight: 86.18 kg

DRUGS (2)
  1. CIMZIA [Suspect]
     Indication: RHEUMATOID ARTHRITIS
     Route: 058
     Dates: start: 201206, end: 20120722
  2. LASIX [Suspect]
     Route: 048
     Dates: start: 201208, end: 2012

REACTIONS (4)
  - Cardiac failure congestive [Recovering/Resolving]
  - Dyspnoea [Recovering/Resolving]
  - Vomiting [Unknown]
  - Diarrhoea [Unknown]
